FAERS Safety Report 6970774-4 (Version None)
Quarter: 2010Q3

REPORT INFORMATION
  Report Type: 
  Country: None (occurrence: None)
  Receive Date: 20100908
  Receipt Date: 20100827
  Transmission Date: 20110219
  Serious: Yes (Hospitalization)
  Sender: FDA-Public Use
  Company Number: A0833075A

PATIENT
  Age: 35 Year
  Sex: Female
  Weight: 119.5 kg

DRUGS (1)
  1. AVANDIA [Suspect]
     Dosage: 4MG PER DAY
     Route: 048
     Dates: start: 20010228, end: 20010523

REACTIONS (2)
  - CARDIAC FAILURE CONGESTIVE [None]
  - PALPITATIONS [None]
